FAERS Safety Report 5207594-7 (Version None)
Quarter: 2006Q4

REPORT INFORMATION
  Report Type: 
  Country: None (occurrence: None)
  Receive Date: 20061030
  Receipt Date: 20060822
  Transmission Date: 20070319
  Serious: No
  Sender: FDA-Public Use
  Company Number: 256318

PATIENT
  Age: 54 Year
  Sex: Female
  Weight: 59.9 kg

DRUGS (3)
  1. LEVEMIR [Suspect]
     Indication: DIABETES MELLITUS INSULIN-DEPENDENT
     Dosage: SLIDING SCALE, SUBCUTANEOUS
     Route: 058
     Dates: start: 20060816
  2. ALTACE [Concomitant]
  3. LIPITOR [Concomitant]

REACTIONS (1)
  - BLOOD GLUCOSE DECREASED [None]
